FAERS Safety Report 6600453-4 (Version None)
Quarter: 2010Q1

REPORT INFORMATION
  Report Type: 
  Country: None (occurrence: None)
  Receive Date: 20100223
  Receipt Date: 20100223
  Transmission Date: 20100710
  Serious: Yes (Disabling)
  Sender: FDA-Public Use
  Company Number: None

PATIENT
  Sex: Male
  Weight: 77.1115 kg

DRUGS (1)
  1. LEVITRA [Suspect]
     Dosage: 1/2 OR 1 EVERYDAY AS NEEDED DAILY FOR 2 DAYS
     Dates: start: 20091201, end: 20100130

REACTIONS (1)
  - RETINAL HAEMORRHAGE [None]
